FAERS Safety Report 5897441-2 (Version None)
Quarter: 2008Q3

REPORT INFORMATION
  Report Type: 
  Country: None (occurrence: None)
  Receive Date: 20080904
  Receipt Date: 20071116
  Transmission Date: 20090109
  Serious: Yes (Other)
  Sender: FDA-Public Use
  Company Number: 2007BH007545

PATIENT

DRUGS (13)
  1. GAMMAGARD S/D [Suspect]
     Indication: IMMUNODEFICIENCY COMMON VARIABLE
     Dosage: 12.5 GM;SC ; 12.5 GM;EVERY WEEK;SC
     Route: 058
     Dates: start: 20070820, end: 20071005
  2. GAMMAGARD S/D [Suspect]
     Indication: IMMUNODEFICIENCY COMMON VARIABLE
     Dosage: 12.5 GM;SC ; 12.5 GM;EVERY WEEK;SC
     Route: 058
     Dates: start: 20071005
  3. GAMMAGARD S/D [Suspect]
  4. GAMMAGARD S/D [Suspect]
  5. GAMMAGARD S/D [Suspect]
  6. BENADRYL [Concomitant]
  7. TYLENOL (CAPLET) [Concomitant]
  8. EPINEPHRINE [Concomitant]
  9. VYTONE [Concomitant]
  10. EFFEXOR XR [Concomitant]
  11. ZYRTEC [Concomitant]
  12. LEVOXYL [Concomitant]
  13. PROTONIX [Concomitant]

REACTIONS (1)
  - URTICARIA [None]
